FAERS Safety Report 16722305 (Version 1)
Quarter: 2019Q3

REPORT INFORMATION
  Report Type: Spontaneous
  Country: US (occurrence: US)
  Receive Date: 20190820
  Receipt Date: 20190820
  Transmission Date: 20191005
  Serious: Yes (Other)
  Sender: FDA-Public Use
  Company Number: US-AMAG PHARMACEUTICALS, INC.-AMAG201903184

PATIENT
  Age: 63 Year
  Sex: Female
  Weight: 43.43 kg

DRUGS (1)
  1. INTRAROSA [Suspect]
     Active Substance: PRASTERONE
     Indication: VULVOVAGINAL PAIN
     Dosage: UNK
     Route: 067

REACTIONS (3)
  - Off label use [Unknown]
  - Bladder pain [Unknown]
  - Insomnia [Unknown]

NARRATIVE: CASE EVENT DATE: 20190208
